FAERS Safety Report 8539931-X (Version None)
Quarter: 2012Q2

REPORT INFORMATION
  Report Type: 
  Country: None (occurrence: None)
  Receive Date: 20120412
  Receipt Date: 20090929
  Transmission Date: 20120825
  Serious: Yes (Other)
  Sender: FDA-Public Use
  Company Number: PHEH2004US13501

PATIENT
  Age: 53 Year
  Sex: Female

DRUGS (32)
  1. ZOLOFT [Concomitant]
  2. COMPAZINE [Concomitant]
  3. VASOTEC [Concomitant]
  4. PROTONIX [Concomitant]
  5. NASONEX [Concomitant]
  6. OXYCODONE HYDROCHLORIDE [Concomitant]
  7. FASLODEX (FLUVESTRANT [Concomitant]
  8. POTASSIUM CHLORIDE [Concomitant]
  9. PROCRIT [Concomitant]
  10. AUGMENTIN /UNK/ (AMOXICILLIN TRIHYDRATE, CLAVULANATE POTASSIUM) [Concomitant]
  11. OXYCONTIN [Concomitant]
  12. CARBOPLATIN [Concomitant]
  13. XELODA [Concomitant]
  14. AROMASIN [Concomitant]
  15. ZOMETA [Suspect]
     Indication: BREAST CANCER METASTATIC
     Dosage: 4 MG, QMO, INTRAVENOUS
     Route: 042
     Dates: start: 20020329, end: 20020912
  16. TAMOXIFEN CITRATE [Concomitant]
  17. ASPIRIN [Concomitant]
  18. TAXOL [Concomitant]
  19. LASIX [Concomitant]
  20. DEXAMETHASONE SODIUM PHOSPHATE [Concomitant]
  21. NAVELBINE ^GLAXO WELLCOME^ (VINORELBINE DITARTRATE) [Concomitant]
  22. ARANESP [Concomitant]
  23. NEUPOGEN [Concomitant]
  24. ZOFRAN [Concomitant]
  25. AREDIA [Suspect]
     Indication: BREAST CANCER METASTATIC
     Dosage: 90 MG, QMO, INFUSION ; 90 MG QMO, INFUSION
     Dates: start: 20020912, end: 20040415
  26. AREDIA [Suspect]
     Indication: BREAST CANCER METASTATIC
     Dosage: 90 MG, QMO, INFUSION ; 90 MG QMO, INFUSION
     Dates: start: 20000620, end: 20020329
  27. ARIMIDEX [Concomitant]
  28. LEVAQUIN [Concomitant]
  29. ZOLOFT [Concomitant]
  30. CLARINEX /USA/ (DESLORATADINE) [Concomitant]
  31. TAXOTERE [Concomitant]
  32. FLAGYL [Concomitant]

REACTIONS (21)
  - BONE GRAFT [None]
  - SOFT TISSUE DISORDER [None]
  - GINGIVAL SWELLING [None]
  - PRIMARY SEQUESTRUM [None]
  - DEVICE FAILURE [None]
  - ORAL INFECTION [None]
  - TOOTHACHE [None]
  - OSTEONECROSIS [None]
  - IMPAIRED HEALING [None]
  - PERIODONTAL DISEASE [None]
  - PAIN IN JAW [None]
  - EXCESSIVE GRANULATION TISSUE [None]
  - OSTEITIS [None]
  - DEBRIDEMENT [None]
  - OEDEMA MUCOSAL [None]
  - STOMATITIS [None]
  - TOOTH ABSCESS [None]
  - FRACTURE [None]
  - BONE DISORDER [None]
  - ORAL MUCOSAL ERYTHEMA [None]
  - DISEASE RECURRENCE [None]
